FAERS Safety Report 16898585 (Version 1)
Quarter: 2019Q4

REPORT INFORMATION
  Report Type: Report from Study
  Country: None (occurrence: NL)
  Receive Date: 20191009
  Receipt Date: 20191009
  Transmission Date: 20200122
  Serious: Yes (Hospitalization)
  Sender: FDA-Public Use
  Company Number: NL-ABBVIE-19K-114-2953324-00

PATIENT
  Sex: Male

DRUGS (3)
  1. PALIVIZUMAB [Suspect]
     Active Substance: PALIVIZUMAB
     Indication: ANTIVIRAL PROPHYLAXIS
     Route: 058
     Dates: start: 20190903, end: 20190903
  2. ORAL REHYDRATION SALTS [Concomitant]
     Indication: DEHYDRATION
  3. PALIVIZUMAB [Suspect]
     Active Substance: PALIVIZUMAB
     Route: 058
     Dates: start: 20191003, end: 20191003

REACTIONS (4)
  - Respiratory arrest [Not Recovered/Not Resolved]
  - Rhinovirus infection [Unknown]
  - Dehydration [Not Recovered/Not Resolved]
  - Malaise [Not Recovered/Not Resolved]

NARRATIVE: CASE EVENT DATE: 2019
